FAERS Safety Report 5488084-3 (Version None)
Quarter: 2007Q4

REPORT INFORMATION
  Report Type: 
  Country: None (occurrence: None)
  Receive Date: 20071017
  Receipt Date: 20071008
  Transmission Date: 20080405
  Serious: Yes (Other)
  Sender: FDA-Public Use
  Company Number: GB-BRISTOL-MYERS SQUIBB COMPANY-13942883

PATIENT
  Age: 17 Year
  Sex: Female

DRUGS (2)
  1. CYCLOPHOSPHAMIDE [Suspect]
     Indication: CHRONIC MYELOID LEUKAEMIA
  2. CAMPATH [Suspect]
     Indication: CHRONIC MYELOID LEUKAEMIA

REACTIONS (10)
  - CHRONIC GRAFT VERSUS HOST DISEASE [None]
  - HEADACHE [None]
  - HYPERTHYROIDISM [None]
  - HYPOTHYROIDISM [None]
  - INFLAMMATION [None]
  - NAUSEA [None]
  - NECK PAIN [None]
  - TACHYCARDIA [None]
  - THYROIDITIS [None]
  - TREMOR [None]
